FAERS Safety Report 7821959-6 (Version None)
Quarter: 2011Q4

REPORT INFORMATION
  Report Type: 
  Country: None (occurrence: None)
  Receive Date: 20111018
  Receipt Date: 20100915
  Transmission Date: 20120403
  Serious: No
  Sender: FDA-Public Use
  Company Number: US-ASTRAZENECA-2010SE43387

PATIENT
  Age: 42 Year
  Sex: Female
  Weight: 70.3 kg

DRUGS (2)
  1. SYMBICORT [Suspect]
     Indication: CHRONIC OBSTRUCTIVE PULMONARY DISEASE
     Dosage: 160 MCG BID
     Route: 055
     Dates: start: 20100501
  2. AVAPRO [Concomitant]

REACTIONS (3)
  - DRUG DOSE OMISSION [None]
  - FEELING COLD [None]
  - DYSPNOEA [None]
